FAERS Safety Report 11400152 (Version 4)
Quarter: 2016Q1

REPORT INFORMATION
  Report Type: Spontaneous
  Country: US (occurrence: US)
  Receive Date: 20150820
  Receipt Date: 20160129
  Transmission Date: 20160525
  Serious: No
  Sender: FDA-Public Use
  Company Number: US-GLAXOSMITHKLINE-US2015118073

PATIENT
  Age: 69 Year
  Sex: Female

DRUGS (12)
  1. ADVAIR DISKUS [Suspect]
     Active Substance: FLUTICASONE PROPIONATE\SALMETEROL XINAFOATE
     Indication: ASTHMA
     Dosage: 1 PUFF(S), BID
     Route: 055
     Dates: start: 2000
  2. ADVAIR DISKUS [Suspect]
     Active Substance: FLUTICASONE PROPIONATE\SALMETEROL XINAFOATE
     Indication: SLEEP APNOEA SYNDROME
  3. NAPROXEN. [Concomitant]
     Active Substance: NAPROXEN
  4. PROAIR HFA [Concomitant]
     Active Substance: ALBUTEROL SULFATE
  5. DULOXETINE. [Concomitant]
     Active Substance: DULOXETINE
  6. LEVOTHYROXINE. [Concomitant]
     Active Substance: LEVOTHYROXINE
  7. ALBUTEROL + IPRATROPIUM [Concomitant]
     Route: 055
  8. FLONASE [Concomitant]
     Active Substance: FLUTICASONE PROPIONATE
  9. METFORMIN [Concomitant]
     Active Substance: METFORMIN HYDROCHLORIDE
  10. VITAMIN D [Concomitant]
     Active Substance: CHOLECALCIFEROL
  11. ADVAIR DISKUS [Suspect]
     Active Substance: FLUTICASONE PROPIONATE\SALMETEROL XINAFOATE
     Indication: CHRONIC OBSTRUCTIVE PULMONARY DISEASE
     Dosage: 1 PUFF(S), BID
     Route: 055
  12. ATORVASTATIN [Concomitant]
     Active Substance: ATORVASTATIN

REACTIONS (3)
  - Condition aggravated [Not Recovered/Not Resolved]
  - Product quality issue [Unknown]
  - Dyspnoea [Not Recovered/Not Resolved]

NARRATIVE: CASE EVENT DATE: 20150807
